FAERS Safety Report 5738649-6 (Version None)
Quarter: 2008Q2

REPORT INFORMATION
  Report Type: 
  Country: None (occurrence: None)
  Receive Date: 20080515
  Receipt Date: 20080509
  Transmission Date: 20081010
  Serious: Yes (Hospitalization)
  Sender: FDA-Public Use
  Company Number: CH-WYE-G01515408

PATIENT
  Age: 59 Year
  Sex: Male

DRUGS (10)
  1. RAPAMUNE [Suspect]
     Indication: RENAL TRANSPLANT
     Route: 048
     Dates: start: 20080301, end: 20080414
  2. MYFORTIC [Concomitant]
     Indication: RENAL TRANSPLANT
     Route: 048
     Dates: start: 20080301
  3. PANTOPRAZOLE SODIUM [Concomitant]
     Route: 048
     Dates: end: 20080414
  4. ARANESP [Concomitant]
     Route: 058
     Dates: end: 20080401
  5. NOPIL [Concomitant]
     Dosage: 800MG/160MG, 3 DOSES PER WEEK
     Route: 048
  6. PRADIF [Concomitant]
     Route: 048
  7. ATORVASTATIN CALCIUM [Concomitant]
     Route: 048
  8. PROGRAF [Suspect]
     Indication: RENAL TRANSPLANT
     Route: 048
     Dates: start: 20080301, end: 20080409
  9. PROGRAF [Suspect]
     Route: 048
     Dates: start: 20080410
  10. ASPIRIN [Concomitant]
     Route: 048

REACTIONS (2)
  - DRUG TOXICITY [None]
  - RENAL TUBULAR DISORDER [None]
